FAERS Safety Report 6193351-4 (Version None)
Quarter: 2009Q2

REPORT INFORMATION
  Report Type: 
  Country: None (occurrence: None)
  Receive Date: 20090514
  Receipt Date: 20090514
  Transmission Date: 20091009
  Serious: Yes (Other)
  Sender: FDA-Public Use
  Company Number: None

PATIENT
  Age: 63 Year
  Sex: Male
  Weight: 108.8633 kg

DRUGS (1)
  1. AVELOX [Suspect]

REACTIONS (3)
  - CHAPPED LIPS [None]
  - HYPERSENSITIVITY [None]
  - LIP SWELLING [None]
